FAERS Safety Report 11883533 (Version 2)
Quarter: 2016Q1

REPORT INFORMATION
  Report Type: Spontaneous
  Country: TR (occurrence: TR)
  Receive Date: 20151231
  Receipt Date: 20160112
  Transmission Date: 20160526
  Serious: Yes (Other)
  Sender: FDA-Public Use
  Company Number: PHHY2015TR149691

PATIENT
  Age: 31 Year
  Sex: Female
  Weight: 104 kg

DRUGS (5)
  1. DELIX PLUS [Concomitant]
     Active Substance: HYDROCHLOROTHIAZIDE\RAMIPRIL
     Indication: HYPERTENSION
     Dosage: 1 DF, QD
     Route: 065
  2. SIGNIFOR [Suspect]
     Active Substance: PASIREOTIDE
     Indication: PITUITARY-DEPENDENT CUSHING^S SYNDROME
     Dosage: 0.6 MG, BID 2X1
     Route: 058
     Dates: start: 20151014, end: 20151109
  3. LANSOR [Concomitant]
     Active Substance: LANSOPRAZOLE
     Indication: PRODUCT USED FOR UNKNOWN INDICATION
     Route: 065
  4. MINRIN MELT [Concomitant]
     Indication: DIABETES INSIPIDUS
     Dosage: 1 DF, QD
     Route: 065
  5. SIGNIFOR [Suspect]
     Active Substance: PASIREOTIDE
     Dosage: 0.3 MG, BID 2X1
     Route: 058
     Dates: start: 20151123

REACTIONS (6)
  - Hypertensive crisis [Recovering/Resolving]
  - Diabetes mellitus [Not Recovered/Not Resolved]
  - Blood glucose increased [Recovering/Resolving]
  - Concomitant disease progression [Not Recovered/Not Resolved]
  - Blood triglycerides increased [Recovering/Resolving]
  - Hypertension [Not Recovered/Not Resolved]

NARRATIVE: CASE EVENT DATE: 20151026
